FAERS Safety Report 4567384-5 (Version None)
Quarter: 2005Q1

REPORT INFORMATION
  Report Type: 
  Country: None (occurrence: None)
  Receive Date: 20050127
  Receipt Date: 20050111
  Transmission Date: 20050727
  Serious: Yes (Life-Threatening, Hospitalization)
  Sender: FDA-Public Use
  Company Number: 2004-FF-00441FF

PATIENT
  Age: 40 Year
  Sex: Male

DRUGS (5)
  1. VIRAMUNE [Suspect]
     Indication: HIV INFECTION
     Dosage: 400 MG (200 MG), PO
     Route: 048
     Dates: start: 20040301, end: 20040316
  2. ORBENIN CAP [Concomitant]
  3. VALIUM (D9AZEPAM) [Concomitant]
  4. COMBIVIR [Concomitant]
  5. DEPAKOTE [Concomitant]

REACTIONS (6)
  - PHIMOSIS [None]
  - PHOTOPHOBIA [None]
  - RHABDOMYOLYSIS [None]
  - SCAR [None]
  - SKIN HYPERTROPHY [None]
  - TOXIC EPIDERMAL NECROLYSIS [None]
